FAERS Safety Report 14906190 (Version 1)
Quarter: 2018Q2

REPORT INFORMATION
  Report Type: Spontaneous
  Country: US (occurrence: US)
  Receive Date: 20180517
  Receipt Date: 20180517
  Transmission Date: 20180711
  Serious: No
  Sender: FDA-Public Use
  Company Number: US-SA-2018SA118459

PATIENT
  Age: 64 Year
  Sex: Male
  Weight: 108 kg

DRUGS (13)
  1. LANTUS SOLOSTAR [Suspect]
     Active Substance: INSULIN GLARGINE
     Indication: TYPE 2 DIABETES MELLITUS
     Dosage: LOT: #8F5060A EXP:08/31/2020 - THREE PENS; LOT: #8F5083A EXP: ?06/31/2020 - ONE PEN DOSE:20 UNIT(S)
     Route: 051
     Dates: start: 2013
  2. LANTUS SOLOSTAR [Suspect]
     Active Substance: INSULIN GLARGINE
     Indication: TYPE 2 DIABETES MELLITUS
     Dosage: LOT: #8F5060A EXP:08/31/2020 - THREE PENS; LOT: #8F5083A EXP: ?06/31/2020 - ONE PEN DOSE:42 UNIT(S)
     Route: 051
     Dates: start: 20180413
  3. SOLOSTAR [Suspect]
     Active Substance: DEVICE
     Indication: TYPE 2 DIABETES MELLITUS
     Dosage: LOT: #8F5060A EXP:08/31/2020 - THREE PENS; LOT: #8F5083A EXP: ?06/31/2020 - ONE PEN
     Dates: start: 20180413
  4. SOLOSTAR [Suspect]
     Active Substance: DEVICE
     Indication: TYPE 2 DIABETES MELLITUS
     Dosage: LOT: #8F5060A EXP:08/31/2020 - THREE PENS; LOT: #8F5083A EXP: ?06/31/2020 - ONE PEN
     Dates: start: 20180413
  5. LANTUS SOLOSTAR [Suspect]
     Active Substance: INSULIN GLARGINE
     Indication: TYPE 2 DIABETES MELLITUS
     Dosage: LOT: #8F5060A EXP:08/31/2020 - THREE PENS; LOT: #8F5083A EXP: ?06/31/2020 - ONE PEN DOSE:70 UNIT(S)
     Route: 051
  6. LANTUS SOLOSTAR [Suspect]
     Active Substance: INSULIN GLARGINE
     Indication: TYPE 2 DIABETES MELLITUS
     Dosage: LOT: #8F5060A EXP:08/31/2020 - THREE PENS; LOT: #8F5083A EXP: ?06/31/2020 - ONE PEN DOSE:20 UNIT(S)
     Route: 051
     Dates: start: 2013
  7. SOLOSTAR [Suspect]
     Active Substance: DEVICE
     Indication: TYPE 2 DIABETES MELLITUS
     Dosage: LOT: #8F5060A EXP:08/31/2020 - THREE PENS; LOT: #8F5083A EXP: ?06/31/2020 - ONE PEN
  8. SOLOSTAR [Suspect]
     Active Substance: DEVICE
     Indication: TYPE 2 DIABETES MELLITUS
     Dosage: LOT: #8F5060A EXP:08/31/2020 - THREE PENS; LOT: #8F5083A EXP: ?06/31/2020 - ONE PEN
     Dates: start: 2013
  9. SOLOSTAR [Suspect]
     Active Substance: DEVICE
     Indication: TYPE 2 DIABETES MELLITUS
     Dosage: LOT: #8F5060A EXP:08/31/2020 - THREE PENS; LOT: #8F5083A EXP: ?06/31/2020 - ONE PEN
     Dates: start: 2013
  10. LANTUS SOLOSTAR [Suspect]
     Active Substance: INSULIN GLARGINE
     Indication: TYPE 2 DIABETES MELLITUS
     Dosage: LOT: #8F5060A EXP:08/31/2020 - THREE PENS; LOT: #8F5083A EXP: ?06/31/2020 - ONE PEN DOSE:42 UNIT(S)
     Route: 051
     Dates: start: 20180413
  11. NOVOLOG [Suspect]
     Active Substance: INSULIN ASPART
     Route: 065
  12. SOLOSTAR [Suspect]
     Active Substance: DEVICE
     Indication: TYPE 2 DIABETES MELLITUS
     Dosage: LOT: #8F5060A EXP:08/31/2020 - THREE PENS; LOT: #8F5083A EXP: ?06/31/2020 - ONE PEN
  13. LANTUS SOLOSTAR [Suspect]
     Active Substance: INSULIN GLARGINE
     Indication: TYPE 2 DIABETES MELLITUS
     Dosage: LOT: #8F5060A EXP:08/31/2020 - THREE PENS; LOT: #8F5083A EXP: ?06/31/2020 - ONE PEN DOSE:70 UNIT(S)
     Route: 051

REACTIONS (3)
  - Product use issue [Unknown]
  - Glycosylated haemoglobin increased [Unknown]
  - Device issue [Unknown]
